FAERS Safety Report 7157450-2 (Version None)
Quarter: 2010Q4

REPORT INFORMATION
  Report Type: 
  Country: None (occurrence: None)
  Receive Date: 20101214
  Receipt Date: 20101130
  Transmission Date: 20110411
  Serious: Yes (Hospitalization, Congenital Anomaly)
  Sender: FDA-Public Use
  Company Number: A0899582A

PATIENT
  Sex: Female

DRUGS (2)
  1. PAXIL [Suspect]
     Indication: ANXIETY
     Dosage: 20MG UNKNOWN
     Dates: start: 19990101, end: 20030826
  2. PAROXETINE HYDROCHLORIDE [Suspect]
     Indication: PRODUCT USED FOR UNKNOWN INDICATION
     Dosage: 20MG UNKNOWN
     Dates: start: 20030925, end: 20041203

REACTIONS (24)
  - ABDOMINAL DISTENSION [None]
  - ANAL ATRESIA [None]
  - CHILLS [None]
  - CLOACAL EXSTROPHY [None]
  - COLITIS ULCERATIVE [None]
  - CONGENITAL GENITOURINARY ABNORMALITY [None]
  - CONGENITAL UTERINE ANOMALY [None]
  - DIARRHOEA [None]
  - DRUG EXPOSURE DURING PREGNANCY [None]
  - ELECTROLYTE IMBALANCE [None]
  - ENTEROCOCCAL INFECTION [None]
  - FEEDING DISORDER OF INFANCY OR EARLY CHILDHOOD [None]
  - MATERNAL DRUGS AFFECTING FOETUS [None]
  - NUTRITIONAL CONDITION ABNORMAL [None]
  - RECTAL HAEMORRHAGE [None]
  - RECTAL PROLAPSE [None]
  - RESPIRATORY SYNCYTIAL VIRUS INFECTION [None]
  - TETHERED CORD SYNDROME [None]
  - URETEROCELE [None]
  - URINARY TRACT INFECTION [None]
  - VACTERL SYNDROME [None]
  - VAGINAL ATRESIA [None]
  - VAGINAL DISORDER [None]
  - WEIGHT GAIN POOR [None]
